FAERS Safety Report 25347718 (Version 1)
Quarter: 2025Q2

REPORT INFORMATION
  Report Type: Report from Study
  Country: CA (occurrence: CA)
  Receive Date: 20250522
  Receipt Date: 20250522
  Transmission Date: 20250716
  Serious: Yes (Other)
  Sender: TAKEDA
  Company Number: CA-TAKEDA-2025TUS048093

PATIENT
  Sex: Male

DRUGS (5)
  1. VEDOLIZUMAB [Suspect]
     Active Substance: VEDOLIZUMAB
     Indication: Colitis ulcerative
  2. Cortiment [Concomitant]
  3. ZOLOFT [Concomitant]
     Active Substance: SERTRALINE HYDROCHLORIDE
     Dosage: 150 MILLIGRAM, QD
  4. REMERON [Concomitant]
     Active Substance: MIRTAZAPINE
  5. RISPERDAL [Concomitant]
     Active Substance: RISPERIDONE

REACTIONS (1)
  - Colitis ulcerative [Not Recovered/Not Resolved]
